FAERS Safety Report 9358361 (Version 3)
Quarter: 2013Q3

REPORT INFORMATION
  Report Type: Report from Study
  Country: VE (occurrence: VE)
  Receive Date: 20130620
  Receipt Date: 20130827
  Transmission Date: 20140515
  Serious: Yes (Hospitalization)
  Sender: FDA-Public Use
  Company Number: PHHY2013VE062523

PATIENT
  Age: 33 Year
  Sex: Female

DRUGS (2)
  1. TASIGNA [Suspect]
     Indication: CHRONIC MYELOID LEUKAEMIA
     Dosage: 800 MG, DAILY
     Route: 048
     Dates: start: 201210, end: 20130611
  2. TASIGNA [Suspect]
     Dosage: 800 MG, DAILY
     Route: 048
     Dates: start: 20130612

REACTIONS (4)
  - Abscess neck [Recovered/Resolved]
  - Muscle abscess [Recovered/Resolved]
  - Blood chloride increased [Unknown]
  - Rash generalised [Unknown]
